FAERS Safety Report 7045185-6 (Version None)
Quarter: 2010Q4

REPORT INFORMATION
  Report Type: 
  Country: None (occurrence: None)
  Receive Date: 20101014
  Receipt Date: 20100706
  Transmission Date: 20110411
  Serious: No
  Sender: FDA-Public Use
  Company Number: US-ALLERGAN-1008743US

PATIENT
  Sex: Female

DRUGS (1)
  1. LATISSE [Suspect]
     Indication: PRODUCT USED FOR UNKNOWN INDICATION
     Dosage: UNK
     Route: 061
     Dates: end: 20100629

REACTIONS (3)
  - EYE SWELLING [None]
  - EYELID PAIN [None]
  - MUSCLE TWITCHING [None]
